FAERS Safety Report 4354447-2 (Version None)
Quarter: 2004Q2

REPORT INFORMATION
  Report Type: 
  Country: None (occurrence: None)
  Receive Date: 20040503
  Receipt Date: 20040421
  Transmission Date: 20050107
  Serious: Yes (Other)
  Sender: FDA-Public Use
  Company Number: 2004019921

PATIENT
  Age: 8 Year
  Sex: Male
  Weight: 25 kg

DRUGS (4)
  1. ZITHROMAX [Suspect]
     Indication: UPPER RESPIRATORY TRACT INFLAMMATION
     Dosage: 240 MG (ONCE), ORAL
     Route: 048
     Dates: start: 20040317, end: 20040317
  2. CEFMETAZOLE SODIUM (CEFMETAZOLE SODIUM) [Suspect]
     Indication: UPPER RESPIRATORY TRACT INFLAMMATION
     Dosage: 2 GRAM (ONCE), INTRAVENOUS
     Route: 042
     Dates: start: 20040318, end: 20040318
  3. CYPROHEPTADINE HCL [Concomitant]
  4. LYSOZYME (LYSOZYME) [Concomitant]

REACTIONS (13)
  - ABDOMINAL PAIN [None]
  - ACUTE GENERALISED EXANTHEMATOUS PUSTULOSIS [None]
  - CONJUNCTIVAL HYPERAEMIA [None]
  - ENANTHEMA [None]
  - ERYTHEMA [None]
  - GENITAL ULCERATION [None]
  - KAWASAKI'S DISEASE [None]
  - LIP EROSION [None]
  - LYMPHADENOPATHY [None]
  - LYMPHOCYTE STIMULATION TEST POSITIVE [None]
  - NEUTROPHIL COUNT INCREASED [None]
  - PYREXIA [None]
  - RASH [None]
